FAERS Safety Report 5885553-9 (Version None)
Quarter: 2008Q3

REPORT INFORMATION
  Report Type: 
  Country: None (occurrence: None)
  Receive Date: 20080916
  Receipt Date: 20080905
  Transmission Date: 20090109
  Serious: No
  Sender: FDA-Public Use
  Company Number: US-B.I. PHARMACEUTICALS,INC./RIDGEFIELD-2008-BP-14076BP

PATIENT

DRUGS (1)
  1. MICARDIS HCT [Suspect]

REACTIONS (1)
  - DIZZINESS [None]
